FAERS Safety Report 14652291 (Version 1)
Quarter: 2018Q1

REPORT INFORMATION
  Report Type: Spontaneous
  Country: GH (occurrence: GH)
  Receive Date: 20180318
  Receipt Date: 20180318
  Transmission Date: 20180509
  Serious: Yes (Hospitalization)
  Sender: FDA-Public Use
  Company Number: PHHY2018GH043849

PATIENT
  Age: 36 Year

DRUGS (1)
  1. EXFORGE HCT [Suspect]
     Active Substance: AMLODIPINE BESYLATE\HYDROCHLOROTHIAZIDE\VALSARTAN
     Indication: HYPERTENSION
     Dosage: UNK
     Route: 065

REACTIONS (6)
  - Migraine [Unknown]
  - Diabetes mellitus [Unknown]
  - Dehydration [Unknown]
  - Weight decreased [Unknown]
  - Pollakiuria [Unknown]
  - Asthenia [Unknown]
